FAERS Safety Report 4792242-0 (Version None)
Quarter: 2005Q4

REPORT INFORMATION
  Report Type: 
  Country: None (occurrence: None)
  Receive Date: 20051007
  Receipt Date: 20050929
  Transmission Date: 20060501
  Serious: Yes (Hospitalization, Disabling, Other)
  Sender: FDA-Public Use
  Company Number: US-MERCK-0510USA00677

PATIENT
  Age: 56 Year
  Sex: Female
  Weight: 67 kg

DRUGS (13)
  1. VIOXX [Suspect]
     Indication: SHOULDER PAIN
     Route: 048
     Dates: start: 19991015
  2. SYNTHROID [Concomitant]
     Route: 065
  3. PLAQUENIL [Concomitant]
     Route: 065
  4. CODEINE [Concomitant]
     Route: 065
  5. PREMARIN [Concomitant]
     Route: 065
  6. ALLEGRA [Concomitant]
     Route: 065
  7. QUININE [Concomitant]
     Route: 065
  8. PRILOSEC [Concomitant]
     Route: 065
  9. GARLIC EXTRACT [Concomitant]
     Route: 065
  10. OMEGA-3 MARINE TRIGLYCERIDES [Concomitant]
     Route: 065
  11. FOLIC ACID [Concomitant]
     Route: 065
  12. VITAMINS (UNSPECIFIED) [Concomitant]
     Route: 065
  13. [THERAPY UNSPECIFIED] [Concomitant]
     Route: 065

REACTIONS (2)
  - ARTHROPATHY [None]
  - MYOCARDIAL INFARCTION [None]
